FAERS Safety Report 18866333 (Version 1)
Quarter: 2021Q1

REPORT INFORMATION
  Report Type: Spontaneous
  Country: US (occurrence: US)
  Receive Date: 20210209
  Receipt Date: 20210209
  Transmission Date: 20210420
  Serious: Yes (Hospitalization)
  Sender: FDA-Public Use
  Company Number: None

PATIENT
  Age: 71 Year
  Sex: Male
  Weight: 109.7 kg

DRUGS (3)
  1. GEMCITABINE. [Concomitant]
     Active Substance: GEMCITABINE
  2. CISPLATIN. [Concomitant]
     Active Substance: CISPLATIN
  3. OLANZAPINE. [Suspect]
     Active Substance: OLANZAPINE
     Dates: end: 20201119

REACTIONS (3)
  - Neutropenia [None]
  - Blood pressure increased [None]
  - Pyrexia [None]

NARRATIVE: CASE EVENT DATE: 20201207
